FAERS Safety Report 8522670 (Version 31)
Quarter: 2017Q1

REPORT INFORMATION
  Report Type: Spontaneous
  Country: US (occurrence: US)
  Receive Date: 20120419
  Receipt Date: 20170124
  Transmission Date: 20170429
  Serious: Yes (Hospitalization, Other)
  Sender: FDA-Public Use
  Company Number: US-GLAXOSMITHKLINE-A0974124A

PATIENT
  Age: 50 Year
  Sex: Female
  Weight: 105 kg

DRUGS (19)
  1. FLOLAN [Suspect]
     Active Substance: EPOPROSTENOL SODIUM
     Dosage: 20 NG/KG/MIN CONTINUOUS
  2. FLOLAN [Suspect]
     Active Substance: EPOPROSTENOL SODIUM
     Dosage: 10 NG/KG/MIN CONTINUOUS
  3. FLOLAN [Suspect]
     Active Substance: EPOPROSTENOL SODIUM
     Dosage: 16 DF, CO
     Route: 042
  4. FLOLAN [Suspect]
     Active Substance: EPOPROSTENOL SODIUM
     Dosage: 11 NG/KG/MIN
  5. FLOLAN [Suspect]
     Active Substance: EPOPROSTENOL SODIUM
     Dosage: 20 DF, CO
     Route: 042
  6. WARFARIN [Concomitant]
     Active Substance: WARFARIN
  7. LETAIRIS [Concomitant]
     Active Substance: AMBRISENTAN
  8. COUMADIN [Concomitant]
     Active Substance: WARFARIN SODIUM
  9. HEPARIN [Concomitant]
     Active Substance: HEPARIN SODIUM
  10. FLOLAN DILUENT SOLUTION FOR INJECTION [Suspect]
     Active Substance: GLYCINE\MANNITOL\SODIUM CHLORIDE
     Indication: PULMONARY ARTERIAL HYPERTENSION
     Dosage: UNK, CO
     Route: 042
  11. ADCIRCA [Concomitant]
     Active Substance: TADALAFIL
  12. FLOLAN [Suspect]
     Active Substance: EPOPROSTENOL SODIUM
     Dosage: UNK
     Dates: start: 20080930
  13. FLOLAN [Suspect]
     Active Substance: EPOPROSTENOL SODIUM
     Dosage: 10 NG/KG/MIN CO
  14. FLOLAN [Suspect]
     Active Substance: EPOPROSTENOL SODIUM
     Dosage: UNK, CO
  15. FLOLAN DILUENT SOLUTION FOR INJECTION [Suspect]
     Active Substance: GLYCINE\MANNITOL\SODIUM CHLORIDE
     Dosage: UNK, CO
     Route: 042
  16. FLOLAN [Suspect]
     Active Substance: EPOPROSTENOL SODIUM
     Indication: PULMONARY ARTERIAL HYPERTENSION
     Dosage: CONCENTRATION 30,000 NG/MLPUMP RATE 50 ML/DAYVIAL STRENGTH 1.5 MGFU-20 NG/KG/MIN CONTINUOUSLY, [...]
     Route: 042
     Dates: start: 20080930
  17. REVATIO [Concomitant]
     Active Substance: SILDENAFIL CITRATE
     Route: 048
  18. FLOLAN [Suspect]
     Active Substance: EPOPROSTENOL SODIUM
     Dosage: UNK
     Dates: start: 20080930
  19. FLOLAN [Suspect]
     Active Substance: EPOPROSTENOL SODIUM
     Dosage: 16 DF, CO
     Dates: start: 20120809

REACTIONS (14)
  - Complication associated with device [Recovered/Resolved]
  - Gingivitis [Unknown]
  - Upper respiratory tract infection [Unknown]
  - Device occlusion [Unknown]
  - Weight decreased [Unknown]
  - Pyrexia [Unknown]
  - Jugular vein distension [Unknown]
  - Muscle strain [Unknown]
  - Cough [Unknown]
  - Central venous catheterisation [Unknown]
  - Nasopharyngitis [Unknown]
  - Malaise [Unknown]
  - Tooth infection [Unknown]
  - Swelling face [Not Recovered/Not Resolved]

NARRATIVE: CASE EVENT DATE: 20150202
